FAERS Safety Report 13082286 (Version 1)
Quarter: 2017Q1

REPORT INFORMATION
  Report Type: Report from Study
  Country: IT (occurrence: IT)
  Receive Date: 20170103
  Receipt Date: 20170103
  Transmission Date: 20170428
  Serious: Yes (Death)
  Sender: FDA-Public Use
  Company Number: IT-PFIZER INC-2017000079

PATIENT

DRUGS (2)
  1. PEGYLATED LIPOSOMAL DOXORUBICIN [Suspect]
     Active Substance: DOXORUBICIN
     Indication: ENDOMETRIAL CANCER METASTATIC
     Dosage: 40 MG/M2, ON DAY 1 EVERY 4 WEEKS, UP TO 6 CYCLES
  2. CARBOPLATIN. [Suspect]
     Active Substance: CARBOPLATIN
     Indication: ENDOMETRIAL CANCER METASTATIC
     Dosage: AUC 5 ON DAY 1 EVERY 4 WEEKS, UP TO 6 CYCLES

REACTIONS (1)
  - Death [Fatal]
